FAERS Safety Report 9359242 (Version 1)
Quarter: 2013Q2

REPORT INFORMATION
  Report Type: Spontaneous
  Country: US (occurrence: US)
  Receive Date: 20130620
  Receipt Date: 20130620
  Transmission Date: 20140414
  Serious: No
  Sender: FDA-Public Use
  Company Number: US-PFIZER INC-2013182489

PATIENT
  Age: 60 Year
  Sex: Female
  Weight: 49.89 kg

DRUGS (1)
  1. ADVIL [Suspect]
     Indication: NECK PAIN
     Dosage: UNK, ONCE A DAY
     Route: 048
     Dates: start: 20130616

REACTIONS (4)
  - Muscle spasms [Not Recovered/Not Resolved]
  - Abdominal pain upper [Not Recovered/Not Resolved]
  - Diarrhoea [Recovering/Resolving]
  - Dehydration [Recovering/Resolving]
